FAERS Safety Report 12310873 (Version 2)
Quarter: 2016Q2

REPORT INFORMATION
  Report Type: Spontaneous
  Country: NL (occurrence: NL)
  Receive Date: 20160427
  Receipt Date: 20160608
  Transmission Date: 20160815
  Serious: Yes (Other)
  Sender: FDA-Public Use
  Company Number: NL-PFIZER INC-2015305978

PATIENT
  Age: 56 Year
  Sex: Female
  Weight: 65 kg

DRUGS (7)
  1. PARACETAMOL [Concomitant]
     Active Substance: ACETAMINOPHEN
     Dosage: 500 MG, UNK
  2. SOMAVERT [Suspect]
     Active Substance: PEGVISOMANT
     Dosage: 10 MG, 1X/DAY
     Route: 058
     Dates: start: 20150212
  3. SOMAVERT [Suspect]
     Active Substance: PEGVISOMANT
     Indication: ACROMEGALY
     Dosage: 10 MG, WEEKLY (1X/ WEEK)
     Dates: start: 20150203
  4. COLECALCIFEROL [Concomitant]
     Active Substance: CHOLECALCIFEROL
     Dosage: 25000 IU/ML, WEEKLY (2 AMPOULES)
  5. LANREOTIDE [Concomitant]
     Active Substance: LANREOTIDE
     Dosage: 300 MG/ML, EVERY 3 WEEKS (ONE INJECTION)
  6. HYDROCORTISON [Concomitant]
     Active Substance: HYDROCORTISONE
     Dosage: 1.5 DF (10MG), 1X/DAY (IN THE EVENING AFTER DINNER WHEN STOMACH COMPLAINTS OCCURED)
  7. AMITRIPTYLINE [Concomitant]
     Active Substance: AMITRIPTYLINE
     Dosage: 2 DF (10MG), 1X/DAY

REACTIONS (7)
  - Urinary tract inflammation [Unknown]
  - Urine output increased [Not Recovered/Not Resolved]
  - Back pain [Not Recovered/Not Resolved]
  - Renal pain [Not Recovered/Not Resolved]
  - Off label use [Recovered/Resolved]
  - Ear pain [Not Recovered/Not Resolved]
  - Blood cholesterol increased [Not Recovered/Not Resolved]

NARRATIVE: CASE EVENT DATE: 201502
